FAERS Safety Report 5753897-7 (Version None)
Quarter: 2008Q2

REPORT INFORMATION
  Report Type: 
  Country: None (occurrence: None)
  Receive Date: 20080530
  Receipt Date: 20080523
  Transmission Date: 20081010
  Serious: Yes (Life-Threatening, Hospitalization, Other)
  Sender: FDA-Public Use
  Company Number: B0519969A

PATIENT
  Age: 72 Year
  Sex: Female
  Weight: 123 kg

DRUGS (10)
  1. WELLBUTRIN [Suspect]
     Indication: DEPRESSION
     Dosage: 150MG PER DAY
     Route: 065
     Dates: start: 20080321, end: 20080406
  2. CARDIOASPIRINE [Concomitant]
     Route: 065
  3. XANAX [Concomitant]
     Route: 065
  4. EMCONCOR [Concomitant]
     Dates: start: 20070108
  5. LASIX [Concomitant]
     Route: 065
  6. PIROXICAM [Concomitant]
  7. LIPITOR [Concomitant]
     Dates: start: 20070302
  8. RISPERDAL [Concomitant]
     Route: 065
  9. LORAZEPAM [Concomitant]
     Route: 065
  10. PROTHIADEN [Concomitant]
     Route: 065

REACTIONS (2)
  - ATRIAL FIBRILLATION [None]
  - DIASTOLIC DYSFUNCTION [None]
